FAERS Safety Report 6150554-2 (Version None)
Quarter: 2009Q2

REPORT INFORMATION
  Report Type: 
  Country: None (occurrence: None)
  Receive Date: 20090407
  Receipt Date: 20090407
  Transmission Date: 20091009
  Serious: No
  Sender: FDA-Public Use
  Company Number: None

PATIENT
  Age: 68 Year
  Sex: Male

DRUGS (2)
  1. TRIAMCINOLONE ACETONIDE [Suspect]
     Indication: DIABETIC RETINAL OEDEMA
     Dosage: 4 MG/0.2 ML
  2. TRIAMCINOLONE ACETONIDE [Suspect]
     Indication: DIABETIC RETINOPATHY
     Dosage: 4 MG/0.2 ML

REACTIONS (2)
  - INTRAOCULAR PRESSURE TEST ABNORMAL [None]
  - VISUAL ACUITY REDUCED [None]
